FAERS Safety Report 16559379 (Version 1)
Quarter: 2019Q3

REPORT INFORMATION
  Report Type: Spontaneous
  Country: RU (occurrence: RU)
  Receive Date: 20190711
  Receipt Date: 20190711
  Transmission Date: 20191004
  Serious: Yes (Other)
  Sender: FDA-Public Use
  Company Number: RU-ROCHE-2350282

PATIENT
  Age: 47 Year
  Sex: Male

DRUGS (1)
  1. TECENTRIQ [Suspect]
     Active Substance: ATEZOLIZUMAB
     Indication: SMALL CELL LUNG CANCER
     Dosage: DOSE- 1ST LINE THERAPY
     Route: 042
     Dates: start: 20190610

REACTIONS (2)
  - Blood bilirubin increased [Unknown]
  - Condition aggravated [Unknown]
